FAERS Safety Report 4521629-6 (Version None)
Quarter: 2004Q4

REPORT INFORMATION
  Report Type: 
  Country: None (occurrence: None)
  Receive Date: 20041208
  Receipt Date: 20041208
  Transmission Date: 20050328
  Serious: Yes (Life-Threatening)
  Sender: FDA-Public Use
  Company Number: None

PATIENT
  Sex: Male
  Weight: 81.1939 kg

DRUGS (2)
  1. CELECOXIB    200MG   HOUSTON VA [Suspect]
     Indication: ARTHRITIS
     Dosage: 200MG  TWICE PER DAY  ORAL
     Route: 048
     Dates: start: 20010715, end: 20040221
  2. CELECOXIB    200MG   HOUSTON VA [Suspect]
     Indication: PARAPARESIS
     Dosage: 200MG  TWICE PER DAY  ORAL
     Route: 048
     Dates: start: 20010715, end: 20040221

REACTIONS (9)
  - BLINDNESS [None]
  - DIFFICULTY IN WALKING [None]
  - EYE HAEMORRHAGE [None]
  - FEELING ABNORMAL [None]
  - GAIT DISTURBANCE [None]
  - HEADACHE [None]
  - NERVOUS SYSTEM DISORDER [None]
  - TRANSIENT ISCHAEMIC ATTACK [None]
  - TUNNEL VISION [None]
